FAERS Safety Report 5617246-7 (Version None)
Quarter: 2008Q1

REPORT INFORMATION
  Report Type: 
  Country: None (occurrence: None)
  Receive Date: 20080204
  Receipt Date: 20080121
  Transmission Date: 20080703
  Serious: Yes (Hospitalization)
  Sender: FDA-Public Use
  Company Number: RENA-12367

PATIENT
  Age: 64 Year
  Sex: Male

DRUGS (11)
  1. RENAGEL [Suspect]
     Indication: HYPERPHOSPHATAEMIA
     Dosage: 0.8 G, TID, ORAL; 1.6 G, TID, ORAL
     Route: 048
     Dates: start: 20071228
  2. LAXATIVES [Concomitant]
  3. REPLAVITE (ASCORBIC ACID, BIOTIN, CYANOCOBALAMIN, FOLIC ACID, NICOTINA [Concomitant]
  4. POTASSIUM CHLORIDE (POTASSIUM CHLORIDE, SODIUM CHLORIDE) [Concomitant]
  5. VITAMIN E (TOCOPHERYL ACETATE) [Concomitant]
  6. ALLOPURINOL [Concomitant]
  7. BISOPROLOL (HYDROCHLOROTHIAZIDE) [Concomitant]
  8. FOLIC ACID [Concomitant]
  9. LANSOPRAZOLE [Concomitant]
  10. ATORVASTATIN (ATORVASTATIN CALCIUM) [Concomitant]
  11. SENNOSIDE (SENNOSIDE A+B CALCIUM) [Concomitant]

REACTIONS (1)
  - CEREBROVASCULAR ACCIDENT [None]
